FAERS Safety Report 19200867 (Version 2)
Quarter: 2021Q2

REPORT INFORMATION
  Report Type: Report from Study
  Country: IT (occurrence: IT)
  Receive Date: 20210430
  Receipt Date: 20210503
  Transmission Date: 20210717
  Serious: Yes (Other)
  Sender: FDA-Public Use
  Company Number: IT-ROCHE-2683848

PATIENT
  Age: 50 Year
  Sex: Female
  Weight: 72 kg

DRUGS (17)
  1. CARBOPLATINUM [Suspect]
     Active Substance: CARBOPLATIN
     Indication: BREAST CANCER
     Dosage: ON 17/JUL/2020, SHE RECEIVED LAST DOSE (230 MG) OF CARBOPLATINUM BEFORE SAE.
     Route: 042
     Dates: start: 20200326
  2. PREDNISONE. [Concomitant]
     Active Substance: PREDNISONE
     Indication: SYNOVITIS
     Dates: start: 20201004, end: 20201019
  3. CYCLOBENZAPRINE HYDROCHLORIDE. [Concomitant]
     Active Substance: CYCLOBENZAPRINE HYDROCHLORIDE
     Route: 048
     Dates: start: 20210115
  4. PREGABALIN. [Concomitant]
     Active Substance: PREGABALIN
     Route: 048
     Dates: start: 20201225
  5. TRASTUZUMAB. [Suspect]
     Active Substance: TRASTUZUMAB
     Indication: BREAST CANCER
     Dosage: ON 18/SEP/2020, SHE RECEIVED LAST DOSE (410 MG) OF TRASTUZUMAB BEFORE SAE 8 COURSE.
     Route: 041
     Dates: start: 20200326
  6. PREGABALIN. [Concomitant]
     Active Substance: PREGABALIN
     Route: 048
     Dates: start: 20201106, end: 20201224
  7. PREGABALIN. [Concomitant]
     Active Substance: PREGABALIN
     Route: 048
     Dates: start: 20210315
  8. CYCLOBENZAPRINE HYDROCHLORIDE. [Concomitant]
     Active Substance: CYCLOBENZAPRINE HYDROCHLORIDE
  9. PACLITAXEL. [Suspect]
     Active Substance: PACLITAXEL
     Indication: BREAST CANCER
     Dosage: ON 17/JUL/2020, SHE RECEIVED LAST DOSE (160 MG) OF PACLITAXEL BEFORE SAE 12 COURSE.
     Route: 042
     Dates: start: 20200326
  10. PREGABALIN. [Concomitant]
     Active Substance: PREGABALIN
     Route: 048
     Dates: start: 20200912, end: 20200929
  11. PERTUZUMAB. [Suspect]
     Active Substance: PERTUZUMAB
     Indication: BREAST CANCER
     Dosage: ON 18/SEP/2020, SHE RECEIVED LAST DOSE (420 MG) OF PERTUZUMAB BEFORE SAE 8 COURSE.
     Route: 042
     Dates: start: 20200326
  12. PREDNISONE. [Concomitant]
     Active Substance: PREDNISONE
     Dates: start: 20201028, end: 20201120
  13. PREDNISONE. [Concomitant]
     Active Substance: PREDNISONE
     Dates: start: 20210115
  14. PREDNISONE. [Concomitant]
     Active Substance: PREDNISONE
     Dates: start: 20200918, end: 20200927
  15. PREGABALIN. [Concomitant]
     Active Substance: PREGABALIN
     Route: 048
     Dates: start: 20200930, end: 20201105
  16. ATEZOLIZUMAB. [Suspect]
     Active Substance: ATEZOLIZUMAB
     Indication: BREAST CANCER
     Dosage: ON 18/SEP/2020, SHE RECEIVED LAST DOSE OF ATEZOLIZUMAB BEFORE SAE 8 COURSE.
     Route: 041
     Dates: start: 20200326
  17. PREDNISONE. [Concomitant]
     Active Substance: PREDNISONE
     Dosage: EVERY OTHER DAY
     Dates: start: 20201221, end: 20210114

REACTIONS (1)
  - Synovitis [Not Recovered/Not Resolved]

NARRATIVE: CASE EVENT DATE: 20200918
